FAERS Safety Report 16665170 (Version 1)
Quarter: 2019Q3

REPORT INFORMATION
  Report Type: Spontaneous
  Country: US (occurrence: US)
  Receive Date: 20190803
  Receipt Date: 20190803
  Transmission Date: 20191004
  Serious: Yes (Other)
  Sender: FDA-Public Use
  Company Number: US-ACCORD-108619

PATIENT
  Age: 64 Year
  Sex: Female
  Weight: 67.13 kg

DRUGS (21)
  1. LEVEMIR [Concomitant]
     Active Substance: INSULIN DETEMIR
  2. SALBUTAMOL [Concomitant]
     Active Substance: ALBUTEROL
  3. JANUVIA [Concomitant]
     Active Substance: SITAGLIPTIN PHOSPHATE
     Dates: start: 19800101
  4. GLIPIZIDE. [Concomitant]
     Active Substance: GLIPIZIDE
     Dates: start: 19800101
  5. CRANBERRY. [Concomitant]
     Active Substance: CRANBERRY
     Dates: start: 19800101
  6. TUMS [Concomitant]
     Active Substance: CALCIUM CARBONATE
     Dates: start: 198001
  7. CLARITIN [Concomitant]
     Active Substance: LORATADINE
     Dates: start: 19800101
  8. LISINOPRIL/LISINOPRIL DIHYDRATE [Concomitant]
     Dates: start: 19800101
  9. ZANTAC [Concomitant]
     Active Substance: RANITIDINE HYDROCHLORIDE
     Dates: start: 19800101
  10. DOCETAXEL ACCORD [Suspect]
     Active Substance: DOCETAXEL
     Indication: BREAST CANCER
     Dosage: NUMBER OF CYCLES: 03
     Dates: start: 20151001, end: 20151204
  11. LEVOTHYROXINE. [Concomitant]
     Active Substance: LEVOTHYROXINE
     Dates: start: 19800101
  12. LOVASTATIN. [Concomitant]
     Active Substance: LOVASTATIN
     Dates: start: 19800101
  13. ERGOCALCIFEROL. [Concomitant]
     Active Substance: ERGOCALCIFEROL
     Dates: start: 19800101
  14. ALLOPURINOL/ALLOPURINOL SODIUM [Concomitant]
     Dates: start: 19800101
  15. ELMIRON [Concomitant]
     Active Substance: PENTOSAN POLYSULFATE SODIUM
     Dates: start: 19800101
  16. TRADJENTA [Concomitant]
     Active Substance: LINAGLIPTIN
  17. FISH OIL [Concomitant]
     Active Substance: FISH OIL
  18. HYDROXYZINE [Concomitant]
     Active Substance: HYDROXYZINE HYDROCHLORIDE
     Dates: start: 19800101
  19. LOPERAMIDE [Concomitant]
     Active Substance: LOPERAMIDE
     Dates: start: 19800101
  20. ASPIR81 [Concomitant]
     Dates: start: 19800101
  21. LORATADINE. [Concomitant]
     Active Substance: LORATADINE

REACTIONS (1)
  - Alopecia [Not Recovered/Not Resolved]

NARRATIVE: CASE EVENT DATE: 201606
